FAERS Safety Report 21601291 (Version 2)
Quarter: 2023Q4

REPORT INFORMATION
  Report Type: Spontaneous
  Country: TR (occurrence: TR)
  Receive Date: 20221116
  Receipt Date: 20231222
  Transmission Date: 20240109
  Serious: Yes (Other)
  Sender: FDA-Public Use
  Company Number: TR-002147023-NVSC2022TR254933

PATIENT
  Age: 7 Year
  Sex: Male

DRUGS (1)
  1. TRILEPTAL [Suspect]
     Active Substance: OXCARBAZEPINE
     Indication: Epilepsy
     Dosage: 3.5 DOSAGE FORM, BID (1.5 TABLETS IN THE MORNING AND 2 TABLETS IN THE EVENING(STARTED ABOUT 1,5-2 MO
     Route: 065

REACTIONS (1)
  - Seizure [Unknown]
